FAERS Safety Report 4838973-5 (Version None)
Quarter: 2005Q4

REPORT INFORMATION
  Report Type: 
  Country: None (occurrence: None)
  Receive Date: 20051031
  Receipt Date: 20050727
  Transmission Date: 20060501
  Serious: No
  Sender: FDA-Public Use
  Company Number: 200516033US

PATIENT
  Sex: Female

DRUGS (1)
  1. KETEK [Suspect]
     Indication: PNEUMONIA
     Dosage: 400 MG BID PO
     Route: 048
     Dates: start: 20050329

REACTIONS (3)
  - APHTHOUS STOMATITIS [None]
  - DRY MOUTH [None]
  - DRY THROAT [None]
